FAERS Safety Report 6170166-4 (Version None)
Quarter: 2009Q2

REPORT INFORMATION
  Report Type: 
  Country: None (occurrence: None)
  Receive Date: 20090427
  Receipt Date: 20090427
  Transmission Date: 20091009
  Serious: Yes (Life-Threatening, Hospitalization)
  Sender: FDA-Public Use
  Company Number: None

PATIENT

DRUGS (1)
  1. METFORMIN HCL [Suspect]
     Indication: DIABETES MELLITUS
     Dosage: 100 DAILY
     Dates: start: 20020101, end: 20080101

REACTIONS (2)
  - ARTERIAL DISORDER [None]
  - MUSCLE SPASMS [None]
